FAERS Safety Report 12187044 (Version 1)
Quarter: 2016Q1

REPORT INFORMATION
  Report Type: Spontaneous
  Country: US (occurrence: None)
  Receive Date: 20160316
  Receipt Date: 20160316
  Transmission Date: 20160526
  Serious: No
  Sender: FDA-Public Use
  Company Number: None

PATIENT
  Age: 51 Year
  Sex: Male
  Weight: 90.27 kg

DRUGS (1)
  1. LEVOTHYROXINE. [Suspect]
     Active Substance: LEVOTHYROXINE
     Indication: HYPOTHYROIDISM
     Dosage: DIFFERENT STRENGTHS Q DAY ORAL?BEFORE 1-26-16
     Route: 048
     Dates: end: 20160126

REACTIONS (1)
  - Nausea [None]

NARRATIVE: CASE EVENT DATE: 20160126
